FAERS Safety Report 9753122 (Version 1)
Quarter: 2013Q4

REPORT INFORMATION
  Report Type: Spontaneous
  Country: US (occurrence: US)
  Receive Date: 20131213
  Receipt Date: 20131213
  Transmission Date: 20140711
  Serious: No
  Sender: FDA-Public Use
  Company Number: US-GILEAD-2010-0026339

PATIENT
  Age: 51 Year
  Sex: Male

DRUGS (13)
  1. LETAIRIS [Suspect]
     Indication: PULMONARY ARTERIAL HYPERTENSION
     Route: 048
     Dates: start: 20091112
  2. VITAMIN D-1000 [Concomitant]
  3. MULTI TAB FOR HIM [Concomitant]
     Route: 048
  4. MAG OXIDE [Concomitant]
  5. FLOVENT AER [Concomitant]
  6. FOLIC ACID [Concomitant]
  7. DIOVAN [Concomitant]
  8. SYNTHROID [Concomitant]
  9. REVATIO [Concomitant]
  10. COUMADIN [Concomitant]
  11. LOPRESSOR [Concomitant]
  12. BUMEX [Concomitant]
  13. MULTI TAB FOR HIM [Concomitant]
     Route: 055

REACTIONS (5)
  - Rash [Unknown]
  - Fatigue [Unknown]
  - Epistaxis [Unknown]
  - Headache [Unknown]
  - Nasal congestion [Unknown]
